FAERS Safety Report 9326251 (Version 1)
Quarter: 2013Q3

REPORT INFORMATION
  Report Type: Spontaneous
  Country: US (occurrence: None)
  Receive Date: 20130603
  Receipt Date: 20130603
  Transmission Date: 20140515
  Serious: Yes (Hospitalization)
  Sender: FDA-Public Use
  Company Number: None

PATIENT
  Age: 75 Year
  Sex: Female
  Weight: 72.5 kg

DRUGS (7)
  1. RAD001 [Suspect]
     Indication: THYROID CANCER
     Dates: start: 20120116, end: 20130522
  2. PASIREOTIDE [Suspect]
     Dosage: EVERY 28 DAYS; IM INJECT
     Dates: start: 20130116, end: 20130508
  3. LANTUS [Concomitant]
  4. PROAIR HFA [Concomitant]
  5. SYMBICORT [Concomitant]
  6. XANAX [Concomitant]
  7. ASPIRIN [Concomitant]

REACTIONS (2)
  - Dyspnoea [None]
  - Pneumonitis [None]
